FAERS Safety Report 18657102 (Version 1)
Quarter: 2020Q4

REPORT INFORMATION
  Report Type: Spontaneous
  Country: US (occurrence: US)
  Receive Date: 20201224
  Receipt Date: 20201224
  Transmission Date: 20210114
  Serious: Yes (Other)
  Sender: FDA-Public Use
  Company Number: US-AUROBINDO-AUR-APL-2019-085417

PATIENT
  Age: 52 Year
  Sex: Female

DRUGS (3)
  1. MELOXICAM. [Suspect]
     Active Substance: MELOXICAM
     Indication: OSTEOARTHRITIS
     Dosage: 15 MILLIGRAM, ONCE A DAY
     Route: 065
  2. OMEPRAZOLE. [Concomitant]
     Active Substance: OMEPRAZOLE
  3. LISINOPRIL. [Concomitant]
     Active Substance: LISINOPRIL

REACTIONS (4)
  - Small intestinal stenosis [Recovering/Resolving]
  - Iron deficiency anaemia [Recovered/Resolved]
  - Hypoalbuminaemia [Recovering/Resolving]
  - Small intestinal ulcer haemorrhage [Recovering/Resolving]
